FAERS Safety Report 8899357 (Version 1)
Quarter: 2012Q4

REPORT INFORMATION
  Report Type: 
  Country: US (occurrence: US)
  Receive Date: 20121108
  Receipt Date: 20121108
  Transmission Date: 20130627
  Serious: No
  Sender: FDA-Public Use
  Company Number: US-AMGEN-USASP2012036672

PATIENT
  Age: 64 Year
  Sex: Female

DRUGS (5)
  1. ENBREL [Suspect]
     Indication: RHEUMATOID ARTHRITIS
     Dosage: 50 mg, qwk
     Dates: start: 201108
  2. ARAVA [Concomitant]
     Dosage: 1 mg, qd
  3. FOLIC ACID [Concomitant]
     Dosage: 1 mg, qd
  4. FLAXSEED OIL [Concomitant]
     Dosage: 1 mg, qd
  5. MULTIVITAMIN [Concomitant]
     Dosage: UNK

REACTIONS (1)
  - Rash [Not Recovered/Not Resolved]
